FAERS Safety Report 11276855 (Version 1)
Quarter: 2015Q3

REPORT INFORMATION
  Report Type: Spontaneous
  Country: BR (occurrence: BR)
  Receive Date: 20150716
  Receipt Date: 20150716
  Transmission Date: 20151125
  Serious: Yes (Other)
  Sender: FDA-Public Use
  Company Number: ALCN2015BR004391

PATIENT
  Sex: Female
  Weight: 65 kg

DRUGS (1)
  1. TEARS NATURALE FORTE [Suspect]
     Active Substance: DEXTRAN 70\GLYCERIN\HYPROMELLOSES
     Indication: EYE LUBRICATION THERAPY
     Dosage: 1 GTT, PRN
     Route: 047
     Dates: start: 2009, end: 201407

REACTIONS (1)
  - Cataract [Recovered/Resolved]

NARRATIVE: CASE EVENT DATE: 2009
